FAERS Safety Report 8589099-9 (Version None)
Quarter: 2012Q3

REPORT INFORMATION
  Report Type: 
  Country: None (occurrence: None)
  Receive Date: 20120813
  Receipt Date: 20120802
  Transmission Date: 20120928
  Serious: No
  Sender: FDA-Public Use
  Company Number: US-009507513-1208USA002230

PATIENT

DRUGS (3)
  1. NASONEX [Suspect]
     Dosage: 4 DF, QD
  2. NASONEX [Suspect]
     Indication: DYSPNOEA
     Dosage: 2 DF, QD
  3. NASONEX [Suspect]
     Dosage: UNK
     Dates: end: 20090101

REACTIONS (2)
  - EPISTAXIS [None]
  - DEVICE MALFUNCTION [None]
